FAERS Safety Report 10547549 (Version 1)
Quarter: 2014Q4

REPORT INFORMATION
  Report Type: Report from Study
  Country: US (occurrence: US)
  Receive Date: 20141028
  Receipt Date: 20141028
  Transmission Date: 20150529
  Serious: Yes (Death, Hospitalization)
  Sender: FDA-Public Use
  Company Number: US-BRISTOL-MYERS SQUIBB COMPANY-21507942

PATIENT
  Age: 56 Year
  Sex: Male
  Weight: 96.3 kg

DRUGS (16)
  1. FLUDROCORTISONE ACETATE. [Concomitant]
     Active Substance: FLUDROCORTISONE ACETATE
  2. LORAZEPAM. [Concomitant]
     Active Substance: LORAZEPAM
  3. TRAZODONE HYDROCHLORIDE. [Concomitant]
     Active Substance: TRAZODONE HYDROCHLORIDE
  4. ACTIGALL [Concomitant]
     Active Substance: URSODIOL
  5. MEPRON [Concomitant]
     Active Substance: ATOVAQUONE
  6. FLUCONAZOLE. [Concomitant]
     Active Substance: FLUCONAZOLE
  7. OXYCONTIN [Concomitant]
     Active Substance: OXYCODONE HYDROCHLORIDE
  8. PREDNISONE. [Concomitant]
     Active Substance: PREDNISONE
  9. VENLAFAXINE HCL [Concomitant]
     Active Substance: VENLAFAXINE HYDROCHLORIDE
  10. OXYCODONE [Concomitant]
     Active Substance: OXYCODONE
  11. IPILIMUMAB [Suspect]
     Active Substance: IPILIMUMAB
     Indication: HODGKIN^S DISEASE
     Route: 042
     Dates: start: 20140122
  12. OMEPRAZOLE. [Concomitant]
     Active Substance: OMEPRAZOLE
  13. ALLOPURINOL. [Concomitant]
     Active Substance: ALLOPURINOL
  14. COLACE [Concomitant]
     Active Substance: DOCUSATE SODIUM
  15. GABAPENTIN. [Concomitant]
     Active Substance: GABAPENTIN
  16. VALCYTE [Concomitant]
     Active Substance: VALGANCICLOVIR HYDROCHLORIDE

REACTIONS (2)
  - Platelet count decreased [Not Recovered/Not Resolved]
  - Malignant neoplasm progression [Fatal]

NARRATIVE: CASE EVENT DATE: 20140219
